FAERS Safety Report 5251120-3 (Version None)
Quarter: 2007Q1

REPORT INFORMATION
  Report Type: 
  Country: None (occurrence: None)
  Receive Date: 20070228
  Receipt Date: 20060915
  Transmission Date: 20070707
  Serious: Yes (Other)
  Sender: FDA-Public Use
  Company Number: US-GLAXOSMITHKLINE-A0618492A

PATIENT
  Age: 47 Year
  Sex: Female

DRUGS (1)
  1. LAMICTAL [Suspect]
     Indication: BIPOLAR DISORDER
     Dosage: 100MG UNKNOWN
     Route: 048

REACTIONS (4)
  - PRURITUS [None]
  - RASH [None]
  - RASH ERYTHEMATOUS [None]
  - STEVENS-JOHNSON SYNDROME [None]
